FAERS Safety Report 9748201 (Version 1)
Quarter: 2013Q4

REPORT INFORMATION
  Report Type: Spontaneous
  Country: US (occurrence: US)
  Receive Date: 20131212
  Receipt Date: 20131212
  Transmission Date: 20140711
  Serious: Yes (Hospitalization, Other)
  Sender: FDA-Public Use
  Company Number: US-PFIZER INC-2013354090

PATIENT
  Age: 52 Year
  Sex: Male
  Weight: 71.66 kg

DRUGS (5)
  1. SUTENT [Suspect]
     Dosage: UNK
     Dates: start: 20131121, end: 20131205
  2. LOVENOX [Concomitant]
     Dosage: UNK
  3. OXYCODONE [Concomitant]
     Dosage: UNK
  4. METOPROLOL [Concomitant]
     Dosage: UNK
  5. METOLAZONE [Concomitant]
     Dosage: UNK

REACTIONS (1)
  - Hepatic failure [Unknown]
